FAERS Safety Report 5131846-2 (Version None)
Quarter: 2006Q4

REPORT INFORMATION
  Report Type: 
  Country: None (occurrence: None)
  Receive Date: 20061016
  Receipt Date: 20061006
  Transmission Date: 20070319
  Serious: Yes (Hospitalization, Other)
  Sender: FDA-Public Use
  Company Number: 2006123494

PATIENT
  Age: 55 Year
  Sex: Male
  Weight: 76.6579 kg

DRUGS (4)
  1. XANAX [Suspect]
     Dosage: 2 MG ORAL
     Route: 048
  2. KADIAN [Suspect]
     Indication: BACK PAIN
     Dosage: 100-400 MILLIGRAMS (100 MG, 1 IN 1 D) ORAL
     Route: 048
     Dates: start: 20060713, end: 20060828
  3. PROZAC [Suspect]
     Indication: DEPRESSION
     Dosage: 40 MG (40 MG, 1 IN 1 D) ORAL
     Route: 048
  4. OXYCODONE HCL [Suspect]
     Indication: BREAKTHROUGH PAIN
     Dosage: 5-10 MILLIGRAMS (5 MG, 2 IN 1 D) ORAL
     Route: 048

REACTIONS (7)
  - COGNITIVE DISORDER [None]
  - DRUG WITHDRAWAL SYNDROME [None]
  - FATIGUE [None]
  - INTENTIONAL OVERDOSE [None]
  - OVERDOSE [None]
  - SEDATION [None]
  - SUICIDE ATTEMPT [None]
